FAERS Safety Report 20190248 (Version 2)
Quarter: 2024Q2

REPORT INFORMATION
  Report Type: Report from Study
  Country: US (occurrence: US)
  Receive Date: 20211215
  Receipt Date: 20240612
  Transmission Date: 20240716
  Serious: Yes (Congenital Anomaly)
  Sender: FDA-Public Use
  Company Number: US-BIOGEN-2021BI01077603

PATIENT
  Sex: Male

DRUGS (2)
  1. TECFIDERA [Suspect]
     Active Substance: DIMETHYL FUMARATE
     Indication: Maternal exposure timing unspecified
     Route: 050
  2. TECFIDERA [Suspect]
     Active Substance: DIMETHYL FUMARATE
     Route: 050
     Dates: start: 20221006

REACTIONS (2)
  - Autism spectrum disorder [Not Recovered/Not Resolved]
  - Foetal exposure during pregnancy [Recovered/Resolved]
